FAERS Safety Report 6368859-9 (Version None)
Quarter: 2009Q3

REPORT INFORMATION
  Report Type: 
  Country: None (occurrence: None)
  Receive Date: 20090916
  Receipt Date: 20090908
  Transmission Date: 20100115
  Serious: Yes (Hospitalization, Other)
  Sender: FDA-Public Use
  Company Number: ADR20402009

PATIENT
  Age: 8 Year
  Sex: Male

DRUGS (4)
  1. LAMOTRIGINE [Suspect]
     Indication: CONVULSION
     Dosage: ORAL
  2. CLOBAZAM [Concomitant]
  3. ETHOSUXIMIDE [Concomitant]
  4. VALPROIC ACID [Concomitant]

REACTIONS (8)
  - ANGIOEDEMA [None]
  - BLISTER [None]
  - COMA [None]
  - DEPRESSED LEVEL OF CONSCIOUSNESS [None]
  - DRUG INTERACTION [None]
  - NECROSIS [None]
  - PNEUMONIA [None]
  - SWEAT GLAND DISORDER [None]
